FAERS Safety Report 19269069 (Version 1)
Quarter: 2021Q2

REPORT INFORMATION
  Report Type: Spontaneous
  Country: US (occurrence: US)
  Receive Date: 20210518
  Receipt Date: 20210518
  Transmission Date: 20210717
  Serious: No
  Sender: FDA-Public Use
  Company Number: US-ALVOGEN-2021-ALVOGEN-116997

PATIENT
  Sex: Male

DRUGS (1)
  1. BUPRENORPHINE/NALOXONE [Suspect]
     Active Substance: BUPRENORPHINE\NALOXONE
     Indication: PRODUCT USED FOR UNKNOWN INDICATION
     Dosage: 8MG ?2 MG

REACTIONS (10)
  - Hyperhidrosis [Unknown]
  - Unevaluable event [Unknown]
  - Abdominal pain upper [Unknown]
  - Headache [Unknown]
  - Pain [Unknown]
  - Drug ineffective [Unknown]
  - Feeling abnormal [Unknown]
  - Withdrawal syndrome [Unknown]
  - Product physical issue [Unknown]
  - Product taste abnormal [Unknown]
